FAERS Safety Report 22590133 (Version 1)
Quarter: 2023Q2

REPORT INFORMATION
  Report Type: Spontaneous
  Country: RO (occurrence: None)
  Receive Date: 20230612
  Receipt Date: 20230612
  Transmission Date: 20230722
  Serious: Yes (Other)
  Sender: FDA-Public Use
  Company Number: RO-ROCHE-3363673

PATIENT
  Age: 72 Year
  Sex: Female

DRUGS (3)
  1. PHESGO [Suspect]
     Active Substance: HYALURONIDASE-ZZXF\PERTUZUMAB\TRASTUZUMAB
     Indication: Product used for unknown indication
     Route: 065
     Dates: start: 202202, end: 202204
  2. CARBOPLATIN [Suspect]
     Active Substance: CARBOPLATIN
     Indication: Product used for unknown indication
     Route: 065
     Dates: start: 202202, end: 202204
  3. DOCETAXEL [Suspect]
     Active Substance: DOCETAXEL
     Indication: Product used for unknown indication
     Route: 065
     Dates: start: 202202, end: 202204

REACTIONS (10)
  - Acute myocardial infarction [Unknown]
  - Decreased appetite [Unknown]
  - Chest pain [Unknown]
  - Dyspnoea [Unknown]
  - Tachycardia [Unknown]
  - Coronary artery disease [Unknown]
  - Hypotension [Unknown]
  - Dizziness [Unknown]
  - Weight decreased [Unknown]
  - Mental disorder [Unknown]
